FAERS Safety Report 5629830-5 (Version None)
Quarter: 2008Q1

REPORT INFORMATION
  Report Type: 
  Country: None (occurrence: None)
  Receive Date: 20080214
  Receipt Date: 20080104
  Transmission Date: 20080703
  Serious: Yes (Other)
  Sender: FDA-Public Use
  Company Number: STI-2008-00445

PATIENT

DRUGS (1)
  1. CLOBETASOL PROPIONATE [Suspect]
     Indication: LICHEN SCLEROSUS
     Dosage: (1 IN 1 DAYS) TOPICAL, (3 IN 1 WEEKS) TOPICAL
     Route: 061

REACTIONS (2)
  - DEPRESSION [None]
  - SQUAMOUS CELL CARCINOMA [None]
